FAERS Safety Report 7256130-2 (Version None)
Quarter: 2011Q1

REPORT INFORMATION
  Report Type: 
  Country: None (occurrence: None)
  Receive Date: 20110129
  Receipt Date: 20100518
  Transmission Date: 20110831
  Serious: No
  Sender: FDA-Public Use
  Company Number: US-ABBOTT-10P-163-0645749-00

PATIENT
  Age: 34 Year
  Sex: Female

DRUGS (2)
  1. HUMIRA [Suspect]
     Indication: CROHN'S DISEASE
     Dates: start: 20100504
  2. ASACOL [Concomitant]
     Indication: BACTERIAL INFECTION
     Dosage: 2 TABS WITH EACH MEAL

REACTIONS (2)
  - RASH [None]
  - INJECTION SITE HAEMATOMA [None]
